FAERS Safety Report 14077454 (Version 1)
Quarter: 2017Q4

REPORT INFORMATION
  Report Type: Report from Study
  Country: DE (occurrence: DE)
  Receive Date: 20171012
  Receipt Date: 20171012
  Transmission Date: 20180321
  Serious: Yes (Death, Other)
  Sender: FDA-Public Use
  Company Number: DE-ROCHE-1950156

PATIENT

DRUGS (16)
  1. CYCLOSPORINE A [Suspect]
     Active Substance: CYCLOSPORINE
     Indication: IMMUNOSUPPRESSION
     Route: 048
  2. ACYCLOVIR. [Concomitant]
     Active Substance: ACYCLOVIR
     Indication: ANTIVIRAL PROPHYLAXIS
     Route: 048
  3. COTRIMOXAZOLE [Concomitant]
     Active Substance: SULFAMETHOXAZOLE\TRIMETHOPRIM
     Indication: PROPHYLAXIS
     Dosage: DOUBLE STREGNTH
     Route: 048
  4. MYCOPHENOLATE MOFETIL. [Suspect]
     Active Substance: MYCOPHENOLATE MOFETIL
     Indication: IMMUNOSUPPRESSION
     Dosage: APPROXIMATELY 2 HOURS PRIOR SKIN INCISION
     Route: 048
  5. TACROLIMUS. [Suspect]
     Active Substance: TACROLIMUS
     Indication: IMMUNOSUPPRESSION
     Dosage: APPROXIMATELY 2 HOURS PRIOR SKIN INCISION PRE LUNG TRANSPLANT
     Route: 048
  6. TACROLIMUS. [Suspect]
     Active Substance: TACROLIMUS
     Dosage: AT WEEK 1
     Route: 050
  7. PREDNISOLONE. [Suspect]
     Active Substance: PREDNISOLONE
     Dosage: 10-15 MG SINGLE-DAY MAINTENANCE DOSE
     Route: 048
  8. FLUCONAZOLE. [Concomitant]
     Active Substance: FLUCONAZOLE
     Indication: PROPHYLAXIS
     Route: 048
  9. METHYLPREDNISOLONE. [Suspect]
     Active Substance: METHYLPREDNISOLONE
     Indication: IMMUNOSUPPRESSION
     Dosage: PREOPERATIVE APPROXIMATELY 2 HOURS PRIOR SKIN INCISION
     Route: 042
  10. PREDNISOLONE. [Suspect]
     Active Substance: PREDNISOLONE
     Indication: IMMUNOSUPPRESSION
     Dosage: DIVIDED IN TWO DOSES PER DAY
     Route: 048
  11. MYCOPHENOLATE MOFETIL. [Suspect]
     Active Substance: MYCOPHENOLATE MOFETIL
     Dosage: 2-3 G AT WEEK 2-WEEK 12 KAND POST WEEK 12
     Route: 048
  12. METHYLPREDNISOLONE. [Suspect]
     Active Substance: METHYLPREDNISOLONE
     Dosage: INTRA OPERATIVE AFTER EACH PA RELEASE
     Route: 042
  13. PREDNISOLONE. [Suspect]
     Active Substance: PREDNISOLONE
     Dosage: SINGLE MORNING DOSE FOLLOWING THE FIRST WEEK AFTER TRANSPLANTATION
     Route: 048
  14. METHYLPREDNISOLONE. [Suspect]
     Active Substance: METHYLPREDNISOLONE
     Dosage: POST TRANSPLANT AFTER EACH PA RELEASE
     Route: 042
  15. IVIG [Suspect]
     Active Substance: HUMAN IMMUNOGLOBULIN G
     Indication: IMMUNOSUPPRESSION
     Dosage: 50 MG/ML POST SKIN INCISION
     Route: 042
  16. MYCOPHENOLATE MOFETIL. [Suspect]
     Active Substance: MYCOPHENOLATE MOFETIL
     Dosage: AT WEEK 1
     Route: 048

REACTIONS (16)
  - Diabetes mellitus [Unknown]
  - Thyroid cancer metastatic [Fatal]
  - Obliterative bronchiolitis [Unknown]
  - Leukopenia [Unknown]
  - Metastatic bronchial carcinoma [Fatal]
  - Staphylococcal infection [Unknown]
  - Gastrointestinal disorder [Unknown]
  - Renal failure [Unknown]
  - Viral sepsis [Unknown]
  - Viral infection [Unknown]
  - Multiple organ dysfunction syndrome [Unknown]
  - Cytomegalovirus infection [Unknown]
  - Herpes simplex [Unknown]
  - Pseudomonas test positive [Unknown]
  - Fungal infection [Unknown]
  - Stenotrophomonas infection [Unknown]
